FAERS Safety Report 9797883 (Version 1)
Quarter: 2014Q1

REPORT INFORMATION
  Report Type: Spontaneous
  Country: FR (occurrence: FR)
  Receive Date: 20140106
  Receipt Date: 20140106
  Transmission Date: 20141002
  Serious: Yes (Hospitalization, Disabling)
  Sender: FDA-Public Use
  Company Number: PHHY2013FR154213

PATIENT
  Age: 68 Year
  Sex: Female

DRUGS (5)
  1. AFINITOR [Suspect]
     Indication: NEUROENDOCRINE CARCINOMA METASTATIC
     Dosage: 10 MG, QD
     Route: 048
     Dates: start: 201301, end: 201302
  2. AFINITOR [Suspect]
     Dosage: 5 MG, QD
     Route: 048
     Dates: start: 201302, end: 20130719
  3. SOMATULINA LP [Suspect]
     Indication: NEUROENDOCRINE CARCINOMA METASTATIC
     Dosage: 0.033 DF, EVERY 28 DAYS
     Route: 030
     Dates: start: 201301, end: 201310
  4. SERETIDE [Concomitant]
     Indication: ASTHMA
     Dosage: UNK UKN, UNK
  5. POLARAMINE [Concomitant]
     Dosage: 2 MG, UNK
     Route: 048
     Dates: start: 201302, end: 201305

REACTIONS (1)
  - Toxic skin eruption [Recovering/Resolving]
